FAERS Safety Report 15243048 (Version 1)
Quarter: 2018Q4

REPORT INFORMATION
  Report Type: Spontaneous
  Country: IN (occurrence: IN)
  Receive Date: 20180806
  Receipt Date: 20180806
  Transmission Date: 20190204
  Serious: No
  Sender: FDA-Public Use
  Company Number: IN-LUPIN LIMITED-2018-00114

PATIENT
  Age: 15 Month
  Sex: Male

DRUGS (4)
  1. EPILIVE SYRUP 100 MG/ML [Suspect]
     Active Substance: LEVETIRACETAM
     Indication: CEREBRAL PALSY
  2. EPILIVE SYRUP 100 MG/ML [Suspect]
     Active Substance: LEVETIRACETAM
     Indication: EPILEPSY
     Dosage: 1.5 ML, BID
     Route: 048
     Dates: start: 201706
  3. NUTRIHALE [Concomitant]
     Indication: PRODUCT USED FOR UNKNOWN INDICATION
     Dosage: 5 ML, BID
     Route: 065
     Dates: start: 201706
  4. ZAPIZ [Concomitant]
     Active Substance: CLONAZEPAM
     Indication: EPILEPSY
     Dosage: 1/4 TABLET, QD
     Route: 065
     Dates: start: 201706

REACTIONS (2)
  - Product use issue [Unknown]
  - No adverse event [Unknown]

NARRATIVE: CASE EVENT DATE: 201706
